FAERS Safety Report 17812933 (Version 1)
Quarter: 2020Q2

REPORT INFORMATION
  Report Type: Spontaneous
  Country: AU (occurrence: AU)
  Receive Date: 20200521
  Receipt Date: 20200521
  Transmission Date: 20200714
  Serious: Yes (Death, Hospitalization)
  Sender: FDA-Public Use
  Company Number: AU-ENDO PHARMACEUTICALS INC-2020-003774

PATIENT
  Age: 77 Year
  Sex: Male

DRUGS (1)
  1. RHEUMATREX [Suspect]
     Active Substance: METHOTREXATE SODIUM
     Indication: PSORIASIS
     Dosage: 5 MG, DAILY FOR FIVE DAYS
     Route: 048

REACTIONS (5)
  - Sepsis [Unknown]
  - Product prescribing error [Fatal]
  - Toxicity to various agents [Fatal]
  - Bone marrow failure [Unknown]
  - End stage renal disease [Unknown]
